FAERS Safety Report 10332281 (Version 1)
Quarter: 2014Q3

REPORT INFORMATION
  Report Type: Report from Study
  Country: BR (occurrence: BR)
  Receive Date: 20140722
  Receipt Date: 20140722
  Transmission Date: 20150326
  Serious: Yes (Other)
  Sender: FDA-Public Use
  Company Number: BR-TEVA-494601ISR

PATIENT
  Age: 19 Year
  Sex: Female
  Weight: 58 kg

DRUGS (1)
  1. COPAXONE [Suspect]
     Active Substance: GLATIRAMER ACETATE
     Indication: MULTIPLE SCLEROSIS
     Dosage: 20 MILLIGRAM DAILY;
     Route: 058
     Dates: start: 20140511

REACTIONS (1)
  - Choking sensation [Recovered/Resolved]

NARRATIVE: CASE EVENT DATE: 20140627
